FAERS Safety Report 5485416-7 (Version None)
Quarter: 2007Q4

REPORT INFORMATION
  Report Type: 
  Country: None (occurrence: None)
  Receive Date: 20071015
  Receipt Date: 20071001
  Transmission Date: 20080405
  Serious: Yes (Hospitalization)
  Sender: FDA-Public Use
  Company Number: US-BAYER-200713079BCC

PATIENT
  Sex: Male

DRUGS (3)
  1. ALEVE [Suspect]
     Indication: PAIN
     Route: 048
  2. ASPIRIN [Suspect]
     Indication: TRANSIENT ISCHAEMIC ATTACK
  3. NEXIUM [Concomitant]

REACTIONS (3)
  - CEREBRAL HAEMORRHAGE [None]
  - MUSCULAR WEAKNESS [None]
  - VISUAL ACUITY REDUCED [None]
